FAERS Safety Report 10676319 (Version 1)
Quarter: 2014Q4

REPORT INFORMATION
  Report Type: Spontaneous
  Country: FR (occurrence: FR)
  Receive Date: 20141226
  Receipt Date: 20141226
  Transmission Date: 20150529
  Serious: Yes (Hospitalization)
  Sender: FDA-Public Use
  Company Number: FR-ASTRAZENECA-2014SE98002

PATIENT
  Age: 26924 Day
  Sex: Male

DRUGS (8)
  1. TERALITHE [Concomitant]
     Active Substance: LITHIUM CARBONATE
     Indication: BIPOLAR DISORDER
     Dates: start: 20141130
  2. MOLSIDOMINE [Concomitant]
     Active Substance: MOLSIDOMINE
  3. PRAZEPAM [Concomitant]
     Active Substance: PRAZEPAM
  4. ZOPICLONE [Concomitant]
     Active Substance: ZOPICLONE
  5. TERALITHE [Concomitant]
     Active Substance: LITHIUM CARBONATE
     Indication: BIPOLAR DISORDER
     Dates: end: 20141130
  6. ACEBUTOLOL [Concomitant]
     Active Substance: ACEBUTOLOL
  7. CIRCADIN [Concomitant]
     Active Substance: MELATONIN
  8. XEROQUEL [Suspect]
     Active Substance: QUETIAPINE FUMARATE
     Route: 048
     Dates: start: 20141119, end: 20141124

REACTIONS (2)
  - Epilepsy [Recovered/Resolved]
  - Loss of consciousness [Recovered/Resolved]

NARRATIVE: CASE EVENT DATE: 20141122
